FAERS Safety Report 14302293 (Version 1)
Quarter: 2017Q4

REPORT INFORMATION
  Report Type: Spontaneous
  Country: US (occurrence: US)
  Receive Date: 20171219
  Receipt Date: 20171219
  Transmission Date: 20180321
  Serious: No
  Sender: FDA-Public Use
  Company Number: US-SUPERNUS PHARMACEUTICALS, INC.-2017SUP00219

PATIENT
  Age: 30 Year
  Sex: Female
  Weight: 95.69 kg

DRUGS (2)
  1. TROKENDI XR [Suspect]
     Active Substance: TOPIRAMATE
     Indication: WEIGHT DECREASED
     Dosage: 50 MG, 1X/DAY
     Route: 048
     Dates: start: 20170814
  2. TROKENDI XR [Suspect]
     Active Substance: TOPIRAMATE
     Indication: WEIGHT DECREASED
     Dosage: 25 MG, 1X/DAY
     Route: 048
     Dates: start: 20170807, end: 20170813

REACTIONS (2)
  - Genital paraesthesia [Not Recovered/Not Resolved]
  - Off label use [Not Recovered/Not Resolved]

NARRATIVE: CASE EVENT DATE: 20170807
